FAERS Safety Report 15451515 (Version 1)
Quarter: 2018Q3

REPORT INFORMATION
  Report Type: Spontaneous
  Country: US (occurrence: US)
  Receive Date: 20180928
  Receipt Date: 20180928
  Transmission Date: 20181020
  Serious: Yes (Life-Threatening, Disabling, Other)
  Sender: FDA-Public Use
  Company Number: None

PATIENT
  Age: 29 Year
  Sex: Male
  Weight: 67.5 kg

DRUGS (2)
  1. BOTOX [Suspect]
     Active Substance: ONABOTULINUMTOXINA
     Indication: TEMPOROMANDIBULAR JOINT SYNDROME
  2. BOTOX [Suspect]
     Active Substance: ONABOTULINUMTOXINA
     Indication: SKIN COSMETIC PROCEDURE

REACTIONS (21)
  - Night sweats [None]
  - Vision blurred [None]
  - Cognitive disorder [None]
  - Asthenia [None]
  - Insomnia [None]
  - Tonic clonic movements [None]
  - Muscle atrophy [None]
  - Malaise [None]
  - Pyrexia [None]
  - Tremor [None]
  - Hypoaesthesia [None]
  - Paraesthesia [None]
  - Muscle twitching [None]
  - Palpitations [None]
  - Trismus [None]
  - Headache [None]
  - Feeling abnormal [None]
  - Alopecia [None]
  - Gastric disorder [None]
  - Neck pain [None]
  - Vertigo [None]

NARRATIVE: CASE EVENT DATE: 20170825
